FAERS Safety Report 9643313 (Version 3)
Quarter: 2014Q4

REPORT INFORMATION
  Report Type: Spontaneous
  Country: US (occurrence: None)
  Receive Date: 20131022
  Receipt Date: 20141106
  Transmission Date: 20150529
  Serious: Yes (Other)
  Sender: FDA-Public Use
  Company Number: 2013-US-001831

PATIENT
  Age: 44 Year
  Sex: Female

DRUGS (1)
  1. XYREM [Suspect]
     Active Substance: SODIUM OXYBATE
     Indication: NARCOLEPSY
     Route: 048
     Dates: start: 20130805, end: 2013

REACTIONS (8)
  - Viral infection [None]
  - Asthma [None]
  - Meniscus injury [None]
  - Sinusitis [None]
  - Bronchitis chronic [None]
  - Osteochondrosis [None]
  - Arthroscopic surgery [None]
  - Cartilage injury [None]

NARRATIVE: CASE EVENT DATE: 201309
